FAERS Safety Report 7583735-1 (Version None)
Quarter: 2011Q2

REPORT INFORMATION
  Report Type: 
  Country: None (occurrence: None)
  Receive Date: 20110630
  Receipt Date: 20110621
  Transmission Date: 20111010
  Serious: Yes (Hospitalization, Other)
  Sender: FDA-Public Use
  Company Number: US-ASTRAZENECA-2010SE52841

PATIENT
  Age: 77 Year
  Sex: Female

DRUGS (3)
  1. ATACAND [Suspect]
     Route: 048
  2. CRESTOR [Suspect]
     Route: 048
  3. NEXIUM [Suspect]
     Route: 048

REACTIONS (8)
  - MALAISE [None]
  - DRUG HYPERSENSITIVITY [None]
  - ENDOMETRIAL CANCER [None]
  - ALOPECIA [None]
  - FEELING ABNORMAL [None]
  - EAR OPERATION [None]
  - MALIGNANT TUMOUR EXCISION [None]
  - CHEMOTHERAPY [None]
